FAERS Safety Report 16541447 (Version 6)
Quarter: 2019Q3

REPORT INFORMATION
  Report Type: Spontaneous
  Country: PL (occurrence: PL)
  Receive Date: 20190708
  Receipt Date: 20190927
  Transmission Date: 20191004
  Serious: Yes (Other)
  Sender: FDA-Public Use
  Company Number: PL-MYLANLABS-2019M1062687

PATIENT
  Age: 47 Year
  Sex: Female

DRUGS (15)
  1. LORATADINE. [Suspect]
     Active Substance: LORATADINE
     Indication: DRUG PROVOCATION TEST
     Dosage: 5 MILLIGRAM PER MILLILITRE (5 DOSAGE FORM)
     Route: 048
  2. CETIRIZINE                         /00884302/ [Suspect]
     Active Substance: CETIRIZINE HYDROCHLORIDE
     Dosage: 1 DOSAGE FORM (1 MG/ML)
     Route: 065
  3. FEXOFENADINE [Suspect]
     Active Substance: FEXOFENADINE HYDROCHLORIDE
     Indication: PRURITUS
     Dosage: 30 MILLIGRAM PER MILLILITRE
     Route: 065
  4. HYDROXYZINE [Suspect]
     Active Substance: HYDROXYZINE HYDROCHLORIDE
     Dosage: 4 MILLIGRAM
     Route: 048
  5. LEVOCETIRIZINE [Suspect]
     Active Substance: LEVOCETIRIZINE
     Indication: DRUG PROVOCATION TEST
     Dosage: 2.5 MILLIGRAM PER MILLILITRE
     Route: 048
  6. FEXOFENADINE [Suspect]
     Active Substance: FEXOFENADINE HYDROCHLORIDE
     Indication: DRUG PROVOCATION TEST
  7. LORATADINE. [Suspect]
     Active Substance: LORATADINE
     Indication: PHYSICAL EXAMINATION
     Dosage: 5 MILLIGRAM PER MILLILITRE
     Route: 065
  8. CETIRIZINE                         /00884302/ [Suspect]
     Active Substance: CETIRIZINE HYDROCHLORIDE
     Indication: DRUG PROVOCATION TEST
     Dosage: 1 MILLIGRAM PER MILLILITRE (1 DOSAGEFORM)
     Route: 048
  9. HYDROXYZINE [Suspect]
     Active Substance: HYDROXYZINE HYDROCHLORIDE
     Indication: DRUG PROVOCATION TEST
     Dosage: 2 MILLIGRAM
     Route: 048
  10. DOXEPIN                            /00138002/ [Suspect]
     Active Substance: DOXEPIN
     Indication: DRUG PROVOCATION TEST
     Dosage: 10 MILLIGRAM PER MILLILITRE (10 DOSAGE FORM)
     Route: 048
  11. FEXOFENADINE [Suspect]
     Active Substance: FEXOFENADINE HYDROCHLORIDE
     Indication: RHINITIS ALLERGIC
     Dosage: 30 DOSAGE FORM (30 MG/ML)
     Route: 048
  12. HYDROXYZINE [Suspect]
     Active Substance: HYDROXYZINE HYDROCHLORIDE
     Dosage: 25 MILLIGRAM
     Route: 048
  13. HYDROXYZINE [Suspect]
     Active Substance: HYDROXYZINE HYDROCHLORIDE
     Dosage: 10 MILLIGRAM
     Route: 065
  14. HYDROXYZINE [Suspect]
     Active Substance: HYDROXYZINE HYDROCHLORIDE
     Dosage: 10 MILLIGRAM PER MILLILITRE (10 DOSAGEFORM)
     Route: 048
  15. DIPHENHYDRAMINE. [Suspect]
     Active Substance: DIPHENHYDRAMINE
     Indication: DRUG PROVOCATION TEST
     Dosage: 12.5 MG/5 ML
     Route: 048

REACTIONS (7)
  - Pruritus generalised [Recovered/Resolved]
  - Bronchospasm [Unknown]
  - Cough [Recovered/Resolved]
  - Dyspnoea [Recovered/Resolved]
  - Nasal congestion [Unknown]
  - Peripheral swelling [Unknown]
  - Pruritus [Unknown]
